FAERS Safety Report 15320087 (Version 1)
Quarter: 2018Q3

REPORT INFORMATION
  Report Type: Spontaneous
  Country: US (occurrence: US)
  Receive Date: 20180820
  Receipt Date: 20180820
  Transmission Date: 20181010
  Serious: Yes (Hospitalization)
  Sender: FDA-Public Use
  Company Number: None

PATIENT
  Age: 32 Year
  Sex: Male
  Weight: 68.6 kg

DRUGS (2)
  1. NIVOLUMAB [Suspect]
     Active Substance: NIVOLUMAB
     Indication: CHOLANGIOCARCINOMA
     Dosage: ?          OTHER FREQUENCY:Q2W;?
     Route: 040
     Dates: start: 20180524, end: 20180709
  2. NIVOLUMAB [Concomitant]
     Active Substance: NIVOLUMAB
     Dates: start: 20180524, end: 20180709

REACTIONS (2)
  - Vomiting [None]
  - Back pain [None]

NARRATIVE: CASE EVENT DATE: 20180819
